FAERS Safety Report 9597085 (Version 1)
Quarter: 2013Q4

REPORT INFORMATION
  Report Type: Spontaneous
  Country: US (occurrence: US)
  Receive Date: 20131004
  Receipt Date: 20131004
  Transmission Date: 20140711
  Serious: No
  Sender: FDA-Public Use
  Company Number: US-009507513-1309USA007277

PATIENT
  Age: 62 Year
  Sex: Male

DRUGS (1)
  1. VICTRELIS [Suspect]
     Indication: CHRONIC HEPATITIS C
     Dosage: 800 MG, TID
     Route: 048
     Dates: start: 20130531

REACTIONS (8)
  - Erythema [Unknown]
  - Eye swelling [Unknown]
  - Dysuria [Unknown]
  - White blood cell count decreased [Unknown]
  - Pruritus [Unknown]
  - Pyrexia [Unknown]
  - Dizziness [Unknown]
  - Haemoglobin decreased [Unknown]
